FAERS Safety Report 8306227-0 (Version None)
Quarter: 2012Q2

REPORT INFORMATION
  Report Type: 
  Country: None (occurrence: None)
  Receive Date: 20120423
  Receipt Date: 20120412
  Transmission Date: 20120825
  Serious: Yes (Other)
  Sender: FDA-Public Use
  Company Number: US-ROCHE-1057455

PATIENT
  Age: 21 Year
  Sex: Male

DRUGS (2)
  1. HEPARIN SODIUM [Suspect]
     Indication: ANTICOAGULANT THERAPY
     Route: 065
  2. ALTEPLASE [Suspect]
     Indication: HEPATIC VEIN THROMBOSIS
     Route: 042

REACTIONS (3)
  - CEREBRAL HAEMORRHAGE [None]
  - VISUAL FIELD DEFECT [None]
  - HEMIPLEGIA [None]
